FAERS Safety Report 8265071-3 (Version None)
Quarter: 2012Q2

REPORT INFORMATION
  Report Type: 
  Country: None (occurrence: None)
  Receive Date: 20120406
  Receipt Date: 20120404
  Transmission Date: 20120825
  Serious: Yes (Hospitalization)
  Sender: FDA-Public Use
  Company Number: IN-EISAI INC-E2090-02072-CLI-IN

PATIENT
  Sex: Female
  Weight: 54 kg

DRUGS (5)
  1. ZONISAMIDE [Suspect]
     Indication: EPILEPSY
     Route: 048
     Dates: start: 20120309, end: 20120315
  2. EPTOIN [Concomitant]
     Indication: EPILEPSY
     Route: 048
     Dates: start: 20090408
  3. VALPROIC ACID [Concomitant]
     Indication: EPILEPSY
     Route: 048
     Dates: start: 20120309
  4. ZEN [Concomitant]
     Indication: EPILEPSY
     Route: 048
     Dates: start: 20090408
  5. ZONISAMIDE [Suspect]
     Route: 048
     Dates: start: 20120316, end: 20120404

REACTIONS (1)
  - PEMPHIGOID [None]
